FAERS Safety Report 18827193 (Version 7)
Quarter: 2021Q2

REPORT INFORMATION
  Report Type: Spontaneous
  Country: US (occurrence: US)
  Receive Date: 20210202
  Receipt Date: 20210506
  Transmission Date: 20210717
  Serious: Yes (Other)
  Sender: FDA-Public Use
  Company Number: US-JNJFOC-20210139251

PATIENT
  Age: 79 Year
  Sex: Male
  Weight: 86.71 kg

DRUGS (2)
  1. SIMPONI [Suspect]
     Active Substance: GOLIMUMAB
     Dosage: HAS BEEN TAKING SIMPONI FOR 3 TO 4 YEARS
     Route: 058
     Dates: start: 20190125
  2. SIMPONI [Suspect]
     Active Substance: GOLIMUMAB
     Indication: COLITIS ULCERATIVE
     Dosage: HAS BEEN TAKING SIMPONI FOR 3 TO 4 YEARS
     Route: 058

REACTIONS (3)
  - Colitis ulcerative [Unknown]
  - Device malfunction [Unknown]
  - Product dose omission issue [Unknown]

NARRATIVE: CASE EVENT DATE: 20210124
